FAERS Safety Report 9869320 (Version 2)
Quarter: 2014Q1

REPORT INFORMATION
  Report Type: Spontaneous
  Country: US (occurrence: US)
  Receive Date: 20140205
  Receipt Date: 20140303
  Transmission Date: 20141002
  Serious: Yes (Other)
  Sender: FDA-Public Use
  Company Number: US-AMGEN-USASP2014006606

PATIENT
  Age: 62 Year
  Sex: Female

DRUGS (1)
  1. XGEVA [Suspect]
     Indication: METASTASES TO BONE
     Route: 065

REACTIONS (8)
  - Breast cancer metastatic [Unknown]
  - Pain in extremity [Unknown]
  - Gait disturbance [Unknown]
  - Local swelling [Unknown]
  - Mass [Unknown]
  - Arthralgia [Unknown]
  - Aphagia [Unknown]
  - Pain [Unknown]
